FAERS Safety Report 6180545-7 (Version None)
Quarter: 2009Q2

REPORT INFORMATION
  Report Type: 
  Country: None (occurrence: None)
  Receive Date: 20090504
  Receipt Date: 20090417
  Transmission Date: 20091009
  Serious: Yes (Hospitalization)
  Sender: FDA-Public Use
  Company Number: 20085920

PATIENT
  Sex: Male

DRUGS (1)
  1. LIORESAL [Suspect]
     Indication: MUSCLE SPASTICITY
     Dosage: UNK MCG, DIALY, INTRATHECAL
     Route: 037

REACTIONS (12)
  - ABDOMINAL RIGIDITY [None]
  - ARTHRALGIA [None]
  - CATHETER SITE PAIN [None]
  - GENERAL PHYSICAL HEALTH DETERIORATION [None]
  - IMPLANT SITE IRRITATION [None]
  - IMPLANT SITE PAIN [None]
  - IMPLANT SITE SWELLING [None]
  - MEDICAL DEVICE COMPLICATION [None]
  - MOVEMENT DISORDER [None]
  - MUSCLE SPASMS [None]
  - PAIN [None]
  - STIFF-MAN SYNDROME [None]
